FAERS Safety Report 4963061-7 (Version None)
Quarter: 2006Q2

REPORT INFORMATION
  Report Type: 
  Country: None (occurrence: None)
  Receive Date: 20060405
  Receipt Date: 20060103
  Transmission Date: 20061013
  Serious: Yes (Other)
  Sender: FDA-Public Use
  Company Number: US-GLAXOSMITHKLINE-A0587540A

PATIENT
  Age: 44 Year
  Sex: Female

DRUGS (8)
  1. ADVAIR DISKUS 100/50 [Suspect]
     Indication: ASTHMA
     Dosage: 1PUFF TWICE PER DAY
     Route: 055
  2. ADVAIR DISKUS 100/50 [Suspect]
     Dosage: 1PUFF TWICE PER DAY
     Route: 055
     Dates: start: 20051101
  3. SARAFEM [Suspect]
     Indication: MENOPAUSAL SYMPTOMS
     Dosage: 20MG PER DAY
     Route: 048
     Dates: start: 20051101
  4. ASTELIN [Concomitant]
  5. NEXIUM [Concomitant]
  6. DEMULEN 1/35-21 [Concomitant]
  7. SINGULAIR [Concomitant]
  8. ZYRTEC [Concomitant]

REACTIONS (3)
  - ASTHMA [None]
  - DRUG INTERACTION [None]
  - DYSPEPSIA [None]
